FAERS Safety Report 5898199-3 (Version None)
Quarter: 2008Q3

REPORT INFORMATION
  Report Type: 
  Country: None (occurrence: None)
  Receive Date: 20080925
  Receipt Date: 20080915
  Transmission Date: 20090109
  Serious: Yes (Life-Threatening, Hospitalization, Other)
  Sender: FDA-Public Use
  Company Number: FR-ELI_LILLY_AND_COMPANY-FR200805005269

PATIENT
  Age: 66 Year
  Sex: Male
  Weight: 81 kg

DRUGS (10)
  1. GEMZAR [Suspect]
     Indication: TRANSITIONAL CELL CARCINOMA
     Dosage: 1000MG/M2 (2000 MG/M2 INFUSION), DAI AND DAY 8 OF A 21 DAY CYCLE
     Route: 042
     Dates: start: 20080317, end: 20080507
  2. ELOXATIN [Concomitant]
     Indication: TRANSITIONAL CELL CARCINOMA
     Dosage: 100MG/M2 (200 MG INFUSION ON DAY 1), UNKNOWN
     Route: 042
     Dates: start: 20080317, end: 20080429
  3. NEXIUM [Concomitant]
     Dosage: UNK, UNKNOWN
     Route: 065
  4. THERALENE [Concomitant]
     Dosage: UNK, UNKNOWN
     Route: 065
  5. DEFIBROTIDE [Concomitant]
     Dosage: UNK, UNKNOWN
     Route: 065
  6. TRANXENE [Concomitant]
     Indication: PROPHYLAXIS OF NAUSEA AND VOMITING
     Dosage: 10 MG, DAILY (1/D)
     Route: 042
     Dates: start: 20080507, end: 20080507
  7. VOGALENE [Concomitant]
     Indication: PROPHYLAXIS OF NAUSEA AND VOMITING
     Dosage: 3 MG, DAILY (1/D)
     Route: 048
     Dates: start: 20080430, end: 20080506
  8. SOLU-MEDROL [Concomitant]
     Indication: PROPHYLAXIS OF NAUSEA AND VOMITING
     Dosage: 40 MG, DAILY (1/D)
     Route: 042
     Dates: start: 20080507, end: 20080507
  9. ZOPHREN [Concomitant]
     Indication: PROPHYLAXIS OF NAUSEA AND VOMITING
     Dosage: 8 MG, DAILY (1/D)
     Route: 042
     Dates: start: 20080507, end: 20080507
  10. PERIDYS [Concomitant]
     Indication: PROPHYLAXIS OF NAUSEA AND VOMITING
     Dosage: 15 MG, 3/D
     Route: 048
     Dates: start: 20080507, end: 20080508

REACTIONS (8)
  - ACUTE HEPATIC FAILURE [None]
  - CHOLECYSTITIS [None]
  - INFLAMMATION [None]
  - MICROCYTIC ANAEMIA [None]
  - RENAL FAILURE ACUTE [None]
  - RETROGRADE PORTAL VEIN FLOW [None]
  - THROMBOCYTOPENIA [None]
  - VENOOCCLUSIVE LIVER DISEASE [None]
